FAERS Safety Report 4373405-5 (Version None)
Quarter: 2004Q2

REPORT INFORMATION
  Report Type: 
  Country: None (occurrence: None)
  Receive Date: 20040603
  Receipt Date: 20040518
  Transmission Date: 20050107
  Serious: Yes (Other)
  Sender: FDA-Public Use
  Company Number: 2004-DE-02978GD

PATIENT
  Age: 39 Year
  Sex: Male

DRUGS (5)
  1. LITHIUM CARBONATE [Suspect]
     Indication: BIPOLAR DISORDER
  2. CYCLOPHOSPHAMIDE [Suspect]
     Dosage: 50 MG/KG, IV
     Route: 042
  3. METHOTREXATE [Suspect]
     Indication: PROPHYLAXIS AGAINST TRANSPLANT REJECTION
  4. CYTARABINE [Concomitant]
     Dosage: 100 MG/M2 CONTINUOUS
  5. CYCLOSPORINE [Suspect]
     Indication: PROPHYLAXIS AGAINST TRANSPLANT REJECTION

REACTIONS (6)
  - ACUTE MYELOID LEUKAEMIA [None]
  - ALLOGENIC BONE MARROW TRANSPLANTATION THERAPY [None]
  - BASEDOW'S DISEASE [None]
  - GRAFT VERSUS HOST DISEASE [None]
  - HYPERTHYROIDISM [None]
  - SMOKER [None]
